FAERS Safety Report 7709997-5 (Version None)
Quarter: 2011Q3

REPORT INFORMATION
  Report Type: 
  Country: None (occurrence: None)
  Receive Date: 20110825
  Receipt Date: 20110810
  Transmission Date: 20111222
  Serious: Yes (Other)
  Sender: FDA-Public Use
  Company Number: PHHY2011BR73008

PATIENT
  Sex: Female

DRUGS (3)
  1. ATENOLOL [Suspect]
     Dosage: UNK UKN, UNK
  2. DIOVAN HCT [Suspect]
     Dosage: 320 MG VALS AND 12.5 MG HYD
     Route: 048
  3. EXFORGE [Suspect]
     Dosage: 320 MG VALS AND 5 MG AMLO
     Route: 048

REACTIONS (4)
  - BLOOD PRESSURE INCREASED [None]
  - GASTRITIS [None]
  - HYPOTHYROIDISM [None]
  - RHEUMATOID ARTHRITIS [None]
